FAERS Safety Report 6660109-9 (Version None)
Quarter: 2010Q1

REPORT INFORMATION
  Report Type: 
  Country: None (occurrence: None)
  Receive Date: 20100331
  Receipt Date: 20100310
  Transmission Date: 20100710
  Serious: No
  Sender: FDA-Public Use
  Company Number: 2008BI030747

PATIENT
  Sex: Female

DRUGS (2)
  1. TYSABRI [Suspect]
     Indication: MULTIPLE SCLEROSIS
     Route: 042
     Dates: start: 20080402, end: 20081117
  2. TYSABRI [Suspect]
     Route: 042
     Dates: start: 20090511

REACTIONS (6)
  - DRUG INEFFECTIVE [None]
  - GAIT DISTURBANCE [None]
  - MULTIPLE SCLEROSIS [None]
  - PRIMARY PROGRESSIVE MULTIPLE SCLEROSIS [None]
  - TREMOR [None]
  - VISUAL IMPAIRMENT [None]
